FAERS Safety Report 14278774 (Version 3)
Quarter: 2017Q4

REPORT INFORMATION
  Report Type: Report from Study
  Country: None (occurrence: AT)
  Receive Date: 20171213
  Receipt Date: 20171214
  Transmission Date: 20180321
  Serious: Yes (Hospitalization)
  Sender: FDA-Public Use
  Company Number: AT-ABBVIE-17K-009-2190829-00

PATIENT
  Age: 47 Year
  Sex: Male

DRUGS (2)
  1. DUODOPA [Suspect]
     Active Substance: CARBIDOPA\LEVODOPA
     Dosage: CR DAYTIME: 3.6ML/H
     Route: 050
     Dates: start: 20171212
  2. DUODOPA [Suspect]
     Active Substance: CARBIDOPA\LEVODOPA
     Indication: PARKINSON^S DISEASE
     Dosage: 16 H THERAPY: MD: 4 ML??CR DAYTIME: 3.4 ML/H??ED: 0.8 ML
     Route: 050
     Dates: start: 20171205, end: 20171212

REACTIONS (2)
  - Intentional product misuse [Recovering/Resolving]
  - Inflammatory marker increased [Recovering/Resolving]

NARRATIVE: CASE EVENT DATE: 20171208
